FAERS Safety Report 6900839-4 (Version None)
Quarter: 2010Q3

REPORT INFORMATION
  Report Type: 
  Country: None (occurrence: None)
  Receive Date: 20100730
  Receipt Date: 20100723
  Transmission Date: 20110219
  Serious: Yes (Other)
  Sender: FDA-Public Use
  Company Number: 016153

PATIENT
  Age: 26 Year
  Sex: Female

DRUGS (1)
  1. KEPPRA [Suspect]
     Indication: PETIT MAL EPILEPSY
     Dosage: 500 MG QD ORAL
     Route: 048
     Dates: start: 20100609, end: 20100610

REACTIONS (2)
  - DISORIENTATION [None]
  - SOMNOLENCE [None]
